FAERS Safety Report 11104475 (Version 3)
Quarter: 2015Q3

REPORT INFORMATION
  Report Type: Spontaneous
  Country: US (occurrence: US)
  Receive Date: 20150511
  Receipt Date: 20150817
  Transmission Date: 20151125
  Serious: Yes (Life-Threatening, Hospitalization)
  Sender: FDA-Public Use
  Company Number: US-BAYER-2015-215567

PATIENT
  Age: 31 Year
  Sex: Female
  Weight: 63.49 kg

DRUGS (4)
  1. XANAX [Concomitant]
     Active Substance: ALPRAZOLAM
     Dosage: 0.5 MG, UNK
     Route: 048
  2. MIRENA [Suspect]
     Active Substance: LEVONORGESTREL
     Indication: CONTRACEPTION
     Dosage: 20 MCG/24HR, CONT
     Route: 015
     Dates: start: 20121024, end: 20130718
  3. CELEXA [Concomitant]
     Active Substance: CITALOPRAM HYDROBROMIDE
     Dosage: 40 MG, UNK
     Route: 048
  4. PRENATAL VITAMINS [Concomitant]
     Active Substance: VITAMINS
     Route: 048

REACTIONS (5)
  - Injury [None]
  - Uterine perforation [None]
  - Infection [None]
  - Abdominal pain [None]
  - General physical health deterioration [None]

NARRATIVE: CASE EVENT DATE: 20130718
